FAERS Safety Report 9063771 (Version 2)
Quarter: 2013Q1

REPORT INFORMATION
  Report Type: Report from Study
  Country: US (occurrence: US)
  Receive Date: 20130213
  Receipt Date: 20130315
  Transmission Date: 20140127
  Serious: Yes (Hospitalization)
  Sender: FDA-Public Use
  Company Number: US-US-EMD SERONO, INC.-7192466

PATIENT
  Sex: Female

DRUGS (3)
  1. REBIF [Suspect]
     Indication: MULTIPLE SCLEROSIS
     Route: 058
     Dates: start: 20121228, end: 20130128
  2. REBIF [Suspect]
     Route: 058
  3. HYDROCHLOROTHIAZIDE [Concomitant]
     Indication: BLOOD PRESSURE

REACTIONS (4)
  - Labyrinthitis [Recovered/Resolved]
  - Central nervous system lesion [Unknown]
  - Vision blurred [Unknown]
  - Blood pressure fluctuation [Recovering/Resolving]
